FAERS Safety Report 9601972 (Version 1)
Quarter: 2013Q4

REPORT INFORMATION
  Report Type: Spontaneous
  Country: US (occurrence: None)
  Receive Date: 20131004
  Receipt Date: 20131004
  Transmission Date: 20140711
  Serious: Yes (Hospitalization)
  Sender: FDA-Public Use
  Company Number: None

PATIENT
  Age: 62 Year
  Sex: Male
  Weight: 60 kg

DRUGS (1)
  1. PHENYTOIN [Suspect]
     Indication: CONVULSION
     Dosage: UNKNOWN-PRIOR TO ADMISSION
     Route: 048

REACTIONS (4)
  - Toxicity to various agents [None]
  - Ataxia [None]
  - Fall [None]
  - Confusional state [None]
